FAERS Safety Report 7229993-4 (Version None)
Quarter: 2011Q1

REPORT INFORMATION
  Report Type: 
  Country: None (occurrence: None)
  Receive Date: 20110117
  Receipt Date: 20110110
  Transmission Date: 20110831
  Serious: Yes (Other)
  Sender: FDA-Public Use
  Company Number: US-RB-019573-10

PATIENT
  Sex: Female

DRUGS (1)
  1. SUBOXONE [Suspect]
     Indication: PRODUCT USED FOR UNKNOWN INDICATION
     Dosage: DOSAGE UNKNOWN AT THIS TIME.
     Route: 065

REACTIONS (7)
  - DRUG DEPENDENCE [None]
  - TOOTH DISORDER [None]
  - DRUG WITHDRAWAL SYNDROME [None]
  - ARTHRALGIA [None]
  - INTENTIONAL DRUG MISUSE [None]
  - PAIN [None]
  - SELF-INJURIOUS IDEATION [None]
